FAERS Safety Report 26138283 (Version 1)
Quarter: 2025Q4

REPORT INFORMATION
  Report Type: Spontaneous
  Country: US (occurrence: US)
  Receive Date: 20251210
  Receipt Date: 20251210
  Transmission Date: 20260117
  Serious: No
  Sender: AUROBINDO
  Company Number: US-AUROBINDO-AUR-APL-2024-060536

PATIENT

DRUGS (1)
  1. FINASTERIDE [Suspect]
     Active Substance: FINASTERIDE
     Indication: Micturition disorder
     Dosage: 1 DOSAGE FORM, DAILY

REACTIONS (2)
  - Drug ineffective [Unknown]
  - Product quality issue [Unknown]
